FAERS Safety Report 12930572 (Version 1)
Quarter: 2016Q4

REPORT INFORMATION
  Report Type: Spontaneous
  Country: US (occurrence: US)
  Receive Date: 20161111
  Receipt Date: 20161111
  Transmission Date: 20170207
  Serious: Yes (Hospitalization)
  Sender: FDA-Public Use
  Company Number: None

PATIENT
  Age: 68 Year
  Sex: Male
  Weight: 94.7 kg

DRUGS (1)
  1. HYDROCHLOROTHIAZIDE. [Suspect]
     Active Substance: HYDROCHLOROTHIAZIDE
     Route: 048
     Dates: start: 20150731, end: 20160523

REACTIONS (4)
  - Restless legs syndrome [None]
  - Hyponatraemia [None]
  - Presyncope [None]
  - Diarrhoea [None]

NARRATIVE: CASE EVENT DATE: 20160522
